FAERS Safety Report 4893832-7 (Version None)
Quarter: 2005Q4

REPORT INFORMATION
  Report Type: 
  Country: None (occurrence: None)
  Receive Date: 20051223
  Receipt Date: 20051031
  Transmission Date: 20060501
  Serious: No
  Sender: FDA-Public Use
  Company Number: 2005PV003704

PATIENT
  Age: 32 Year
  Sex: Female
  Weight: 83.4619 kg

DRUGS (2)
  1. SYMLIN [Suspect]
     Indication: DIABETES MELLITUS INSULIN-DEPENDENT
     Dosage: 45 MCG;TID;SC
     Route: 058
     Dates: start: 20051025
  2. NOVOLOG [Concomitant]

REACTIONS (6)
  - BLOOD GLUCOSE DECREASED [None]
  - BLOOD GLUCOSE INCREASED [None]
  - MOOD SWINGS [None]
  - NAUSEA [None]
  - TREMOR [None]
  - WEIGHT DECREASED [None]
